FAERS Safety Report 4973842-1 (Version None)
Quarter: 2006Q2

REPORT INFORMATION
  Report Type: 
  Country: None (occurrence: None)
  Receive Date: 20060414
  Receipt Date: 20041203
  Transmission Date: 20061013
  Serious: Yes (Hospitalization)
  Sender: FDA-Public Use
  Company Number: US-MERCK-0412USA00633

PATIENT
  Age: 61 Year
  Sex: Male
  Weight: 105 kg

DRUGS (6)
  1. VIOXX [Suspect]
     Indication: ARTHRALGIA
     Route: 048
     Dates: start: 19991005, end: 20020416
  2. VIOXX [Suspect]
     Indication: BACK PAIN
     Route: 048
     Dates: start: 19991005, end: 20020416
  3. VERAPAMIL MSD LP [Concomitant]
     Route: 065
  4. AMITRIPTYLIN [Concomitant]
     Route: 065
  5. ALTACE [Concomitant]
     Route: 065
  6. CENTRUM [Concomitant]
     Route: 065

REACTIONS (3)
  - ACUTE MYOCARDIAL INFARCTION [None]
  - CONDITION AGGRAVATED [None]
  - HAEMORRHAGE [None]
